FAERS Safety Report 5871978-4 (Version None)
Quarter: 2008Q3

REPORT INFORMATION
  Report Type: 
  Country: None (occurrence: None)
  Receive Date: 20080905
  Receipt Date: 20080823
  Transmission Date: 20090109
  Serious: Yes (Other)
  Sender: FDA-Public Use
  Company Number: US-BAYER-200825478GPV

PATIENT
  Age: 71 Year
  Sex: Male

DRUGS (2)
  1. SORAFENIB [Suspect]
     Indication: HEPATIC NEOPLASM MALIGNANT
     Route: 065
  2. BEVACIZUMAB [Concomitant]
     Indication: HEPATIC NEOPLASM MALIGNANT
     Route: 065

REACTIONS (1)
  - CARDIOMYOPATHY [None]
